FAERS Safety Report 8590040 (Version 4)
Quarter: 2014Q1

REPORT INFORMATION
  Report Type: Spontaneous
  Country: US (occurrence: US)
  Receive Date: 20120601
  Receipt Date: 20140108
  Transmission Date: 20141002
  Serious: Yes (Hospitalization, Disabling, Other)
  Sender: FDA-Public Use
  Company Number: US-ASTRAZENECA-2012SE34545

PATIENT
  Age: 54 Year
  Sex: Male

DRUGS (28)
  1. NEXIUM [Suspect]
     Indication: HIATUS HERNIA
     Dosage: ONE  MAY BE TWO TIME  DAILY
     Route: 048
     Dates: start: 2000
  2. NEXIUM [Suspect]
     Indication: HIATUS HERNIA
     Route: 048
     Dates: start: 20040207
  3. NEXIUM [Suspect]
     Indication: HIATUS HERNIA
     Route: 048
     Dates: start: 20040207
  4. PRILOSEC [Suspect]
     Route: 048
  5. PRILOSEC [Suspect]
     Route: 048
     Dates: start: 20000505
  6. PRILOSEC OTC [Suspect]
     Route: 048
  7. PREVACID [Concomitant]
  8. PREVACID [Concomitant]
     Dates: start: 20011102
  9. ZANTAC [Concomitant]
  10. TAGAMET [Concomitant]
  11. PEPCID [Concomitant]
  12. ROLAIDS [Concomitant]
  13. B-12/B COMPLEX [Concomitant]
  14. CLONIDINE [Concomitant]
  15. PAROXETINE [Concomitant]
  16. PRAVASTATINE [Concomitant]
  17. LISINOPRIL [Concomitant]
  18. SPIRONOLACTONE [Concomitant]
  19. HYDROCODONE [Concomitant]
  20. SOMA [Concomitant]
  21. VERAPAMIL [Concomitant]
     Dates: start: 20040207
  22. DIOVAN HCT [Concomitant]
     Dosage: 80/12.5 MG
     Dates: start: 20040611
  23. TRICOR [Concomitant]
  24. ATENOLOL [Concomitant]
     Dates: start: 20050705
  25. PROTONIX [Concomitant]
     Dates: start: 20010815
  26. VIAGRA [Concomitant]
     Dates: start: 20080607
  27. PROMETHAZINE [Concomitant]
     Dates: start: 20071130
  28. SULFATRIM [Concomitant]
     Dates: start: 20071130

REACTIONS (16)
  - Renal cancer [Unknown]
  - Spinal osteoarthritis [Unknown]
  - Hypertension [Unknown]
  - Presyncope [Unknown]
  - Bladder cancer [Unknown]
  - Joint injury [Unknown]
  - Lumbar radiculopathy [Unknown]
  - Osteoporosis [Unknown]
  - Multiple fractures [Unknown]
  - Angina pectoris [Unknown]
  - Arthritis [Unknown]
  - Bone disorder [Unknown]
  - Rheumatoid arthritis [Unknown]
  - Back pain [Unknown]
  - Intervertebral disc protrusion [Unknown]
  - Osteoarthritis [Unknown]
